FAERS Safety Report 5662028-3 (Version None)
Quarter: 2008Q1

REPORT INFORMATION
  Report Type: 
  Country: None (occurrence: None)
  Receive Date: 20080312
  Receipt Date: 20080310
  Transmission Date: 20080703
  Serious: Yes (Other)
  Sender: FDA-Public Use
  Company Number: ES-WYE-G01222508

PATIENT
  Age: 48 Year
  Sex: Male

DRUGS (4)
  1. TIGECYCLINE [Suspect]
     Indication: PNEUMONIA
     Dosage: UNKNOWN
  2. AMPHOTERICIN B [Concomitant]
     Dosage: UNKNOWN
  3. AMIKACIN [Concomitant]
     Dosage: UNKNOWN
  4. TAZOCEL [Suspect]
     Dosage: UNKNOWN

REACTIONS (1)
  - LUNG INFECTION PSEUDOMONAL [None]
